FAERS Safety Report 5036319-3 (Version None)
Quarter: 2006Q2

REPORT INFORMATION
  Report Type: 
  Country: None (occurrence: None)
  Receive Date: 20060601
  Receipt Date: 20060426
  Transmission Date: 20061013
  Serious: No
  Sender: FDA-Public Use
  Company Number: US200604004512

PATIENT
  Age: 45 Year
  Sex: Female

DRUGS (3)
  1. CYMBALTA [Suspect]
  2. LAMICTAL [Concomitant]
  3. WELLBUTRIN [Concomitant]

REACTIONS (1)
  - HYPERAESTHESIA [None]
